FAERS Safety Report 21667041 (Version 1)
Quarter: 2022Q4

REPORT INFORMATION
  Report Type: Spontaneous
  Country: CZ (occurrence: CZ)
  Receive Date: 20221201
  Receipt Date: 20221201
  Transmission Date: 20230112
  Serious: Yes (Other)
  Sender: FDA-Public Use
  Company Number: CZ-Accord-263988

PATIENT
  Age: 77 Year
  Sex: Female

DRUGS (7)
  1. ANASTROZOLE [Suspect]
     Active Substance: ANASTROZOLE
     Indication: Invasive ductal breast carcinoma
     Dates: start: 202002, end: 202103
  2. APIXABAN [Suspect]
     Active Substance: APIXABAN
     Indication: Ventricular tachycardia
  3. PACLITAXEL [Suspect]
     Active Substance: PACLITAXEL
     Indication: Invasive ductal breast carcinoma
     Dosage: WEEKLY
     Dates: start: 202112
  4. REMDESIVIR [Concomitant]
     Active Substance: REMDESIVIR
     Indication: COVID-19
  5. FULVESTRANT [Concomitant]
     Active Substance: FULVESTRANT
     Indication: Invasive ductal breast carcinoma
     Dates: start: 202103
  6. PALBOCICLIB [Concomitant]
     Active Substance: PALBOCICLIB
     Indication: Invasive ductal breast carcinoma
     Dates: start: 202103
  7. DENOSUMAB [Concomitant]
     Active Substance: DENOSUMAB
     Indication: Breast cancer

REACTIONS (8)
  - Rash pruritic [Unknown]
  - Hypersensitivity [Unknown]
  - Ischaemic stroke [Recovered/Resolved]
  - Fatigue [Unknown]
  - Tumour marker increased [Unknown]
  - Back pain [Unknown]
  - Malaise [Unknown]
  - Neoplasm progression [Unknown]

NARRATIVE: CASE EVENT DATE: 20200101
